FAERS Safety Report 10673480 (Version 4)
Quarter: 2015Q2

REPORT INFORMATION
  Report Type: Report from Study
  Country: FR (occurrence: FR)
  Receive Date: 20141224
  Receipt Date: 20150428
  Transmission Date: 20150821
  Serious: Yes (Life-Threatening, Hospitalization)
  Sender: FDA-Public Use
  Company Number: FR-ROCHE-1511445

PATIENT
  Sex: Male
  Weight: 52 kg

DRUGS (6)
  1. IFOSFAMIDE. [Suspect]
     Active Substance: IFOSFAMIDE
     Indication: GERM CELL NEOPLASM
     Route: 042
     Dates: start: 20141113, end: 20141117
  2. ETOPOSIDE. [Suspect]
     Active Substance: ETOPOSIDE
     Indication: GERM CELL NEOPLASM
     Route: 042
     Dates: start: 20141113, end: 20141117
  3. BEVACIZUMAB [Suspect]
     Active Substance: BEVACIZUMAB
     Indication: GERM CELL NEOPLASM
     Route: 042
     Dates: start: 20140930
  4. CARBOPLATIN. [Suspect]
     Active Substance: CARBOPLATIN
     Indication: GERM CELL NEOPLASM
     Route: 042
     Dates: start: 20141113, end: 20141117
  5. BEVACIZUMAB [Suspect]
     Active Substance: BEVACIZUMAB
     Route: 042
     Dates: start: 20141021
  6. BEVACIZUMAB [Suspect]
     Active Substance: BEVACIZUMAB
     Dosage: LAST DOSE PRIOR TO SAE: 12/NOV/2014
     Route: 042
     Dates: start: 20141112

REACTIONS (3)
  - Hepatitis [Not Recovered/Not Resolved]
  - Epstein-Barr virus infection [Not Recovered/Not Resolved]
  - Venoocclusive disease [Recovered/Resolved]

NARRATIVE: CASE EVENT DATE: 20141205
